FAERS Safety Report 14455679 (Version 3)
Quarter: 2018Q1

REPORT INFORMATION
  Report Type: Report from Study
  Country: ES (occurrence: ES)
  Receive Date: 20180130
  Receipt Date: 20180216
  Transmission Date: 20180509
  Serious: Yes (Hospitalization, Other)
  Sender: FDA-Public Use
  Company Number: ES-BRISTOL-MYERS SQUIBB COMPANY-BMS-2018-006230

PATIENT
  Age: 40 Year
  Sex: Male
  Weight: 60 kg

DRUGS (5)
  1. NIVOLUMAB [Suspect]
     Active Substance: NIVOLUMAB
     Indication: SOFT TISSUE SARCOMA
     Dosage: 1 DF, QCYCLE
     Route: 042
     Dates: start: 20170817
  2. SUNITINIB MALATE. [Suspect]
     Active Substance: SUNITINIB MALATE
     Indication: SOFT TISSUE SARCOMA
     Dosage: 25 MG, QD
     Route: 048
     Dates: start: 20170802
  3. MORPHINE [Concomitant]
     Active Substance: MORPHINE
     Indication: PAIN
     Dosage: UNK
     Route: 065
     Dates: start: 20170209
  4. NIVOLUMAB [Suspect]
     Active Substance: NIVOLUMAB
     Indication: BONE SARCOMA
     Route: 065
  5. SUNITINIB MALATE. [Suspect]
     Active Substance: SUNITINIB MALATE
     Indication: BONE SARCOMA
     Route: 065

REACTIONS (1)
  - Renal failure [Recovered/Resolved]

NARRATIVE: CASE EVENT DATE: 20180118
